FAERS Safety Report 7750202-1 (Version None)
Quarter: 2011Q3

REPORT INFORMATION
  Report Type: 
  Country: None (occurrence: None)
  Receive Date: 20110914
  Receipt Date: 20110830
  Transmission Date: 20111222
  Serious: Yes (Hospitalization)
  Sender: FDA-Public Use
  Company Number: DE-PFIZER INC-2011200486

PATIENT
  Age: 56 Year
  Sex: Male
  Weight: 95 kg

DRUGS (12)
  1. JONOSTERIL [Concomitant]
     Indication: HIP ARTHROPLASTY
     Dosage: UNK
     Route: 042
     Dates: start: 20090212
  2. NOVALGIN [Concomitant]
     Indication: HIP ARTHROPLASTY
     Dosage: 2.5 G, UNK
     Dates: start: 20090212
  3. NOVALGIN [Concomitant]
     Dosage: UNK
     Dates: start: 20090223
  4. PANTOPRAZOLE [Concomitant]
     Indication: POSTOPERATIVE CARE
     Dosage: 40 MG, 1X/DAY
     Route: 048
     Dates: start: 20090212
  5. ATRACURIUM [Concomitant]
     Indication: ANAESTHESIA
     Dosage: UNK
     Dates: start: 20090212
  6. JONOSTERIL [Concomitant]
     Indication: POSTOPERATIVE CARE
     Dosage: UNK
     Dates: start: 20090223
  7. PROPOFOL [Concomitant]
     Indication: ANAESTHESIA
     Dosage: UNK
     Dates: start: 20090212
  8. RIVAROXABAN [Suspect]
     Indication: THROMBOSIS PROPHYLAXIS
     Dosage: 10 MG, 1X/DAY
     Route: 048
     Dates: start: 20090212, end: 20090302
  9. FENTANYL [Concomitant]
     Indication: ANAESTHESIA
     Dosage: UNK
     Dates: start: 20090212
  10. CEFAZOLIN [Concomitant]
     Indication: ANTIBIOTIC PROPHYLAXIS
     Dosage: 2 G, UNK
     Dates: start: 20090212
  11. IBUPROFEN [Suspect]
     Indication: ANALGESIC THERAPY
     Dosage: 600 MG, 3X/DAY
     Route: 048
     Dates: start: 20090212, end: 20090303
  12. PROTON PUMP INHIBITORS [Concomitant]
     Dosage: UNK

REACTIONS (3)
  - THROMBOSIS [None]
  - POST PROCEDURAL HAEMATOMA [None]
  - DRUG INTERACTION [None]
